FAERS Safety Report 5221732-1 (Version None)
Quarter: 2007Q1

REPORT INFORMATION
  Report Type: 
  Country: None (occurrence: None)
  Receive Date: 20070129
  Receipt Date: 20070122
  Transmission Date: 20070707
  Serious: Yes (Disabling)
  Sender: FDA-Public Use
  Company Number: CA-AVENTIS-200710646GDDC

PATIENT
  Age: 64 Year
  Sex: Female

DRUGS (2)
  1. TAXOTERE [Suspect]
     Route: 042
     Dates: start: 20060101, end: 20061101
  2. ANTIVIRALS NOS [Concomitant]

REACTIONS (10)
  - AUTONOMIC NEUROPATHY [None]
  - BLADDER DISORDER [None]
  - DYSGRAPHIA [None]
  - FEEDING DISORDER [None]
  - GAIT DISTURBANCE [None]
  - HYPOAESTHESIA [None]
  - INTESTINAL FUNCTIONAL DISORDER [None]
  - MOTOR DYSFUNCTION [None]
  - NEUROPATHY PERIPHERAL [None]
  - OEDEMA PERIPHERAL [None]
